FAERS Safety Report 9839425 (Version 3)
Quarter: 2014Q1

REPORT INFORMATION
  Report Type: Spontaneous
  Country: CA (occurrence: CA)
  Receive Date: 20140123
  Receipt Date: 20140210
  Transmission Date: 20141002
  Serious: Yes (Hospitalization, Other)
  Sender: FDA-Public Use
  Company Number: CA-AMGEN-CANSP2014001798

PATIENT
  Age: 85 Year
  Sex: Female
  Weight: 59.86 kg

DRUGS (8)
  1. PROLIA [Suspect]
     Indication: OSTEOPOROSIS POSTMENOPAUSAL
     Dosage: 60 MG, Q6MO
     Route: 058
     Dates: start: 20130809, end: 20140116
  2. EVISTA [Concomitant]
     Indication: OSTEOPOROSIS
     Dosage: 60 MG, QD
     Route: 048
     Dates: start: 20030620
  3. SEROQUEL [Concomitant]
     Indication: INSOMNIA
     Dosage: 25 MG, QHS
     Route: 048
     Dates: start: 20011023
  4. MOTILIUM                           /00498201/ [Concomitant]
     Indication: DYSPEPSIA
     Dosage: 10 MG, TID, PRN
     Route: 048
     Dates: start: 20130809
  5. VESICARE [Concomitant]
     Indication: BLADDER IRRITATION
     Dosage: 5 MG, QD
     Route: 048
     Dates: start: 20131207
  6. BLOPRESS [Concomitant]
     Indication: HYPERTENSION
     Dosage: 150 MG, QD
     Route: 048
     Dates: start: 20100329
  7. SINEQUAN [Concomitant]
     Indication: INSOMNIA
     Dosage: 25 MG, QHS
     Route: 048
     Dates: start: 20011023
  8. AVAPRO [Concomitant]
     Indication: HYPERTENSION
     Dosage: 150 MG, QD
     Route: 048
     Dates: start: 20100727

REACTIONS (5)
  - Pneumonia [Unknown]
  - Cystitis [Recovering/Resolving]
  - Bacteraemia [Unknown]
  - Fall [Unknown]
  - Walking aid user [Unknown]
